FAERS Safety Report 24049389 (Version 1)
Quarter: 2024Q3

REPORT INFORMATION
  Report Type: Spontaneous
  Country: GB (occurrence: GB)
  Receive Date: 20240704
  Receipt Date: 20240704
  Transmission Date: 20241016
  Serious: No
  Sender: ALKEM
  Company Number: None

PATIENT
  Age: 31 Year
  Sex: Female
  Weight: 60 kg

DRUGS (5)
  1. IBUPROFEN [Suspect]
     Active Substance: IBUPROFEN
     Indication: Product used for unknown indication
     Dosage: UNK, TABLET (PDF)
     Route: 065
     Dates: start: 20240411
  2. LAMOTRIGINE [Concomitant]
     Active Substance: LAMOTRIGINE
     Indication: Product used for unknown indication
     Dosage: UNK, (08:00-1 TABLETS) (17:00-1 TABLETS)
     Route: 065
     Dates: start: 20240306, end: 20240514
  3. METHADONE [Concomitant]
     Active Substance: METHADONE HYDROCHLORIDE
     Indication: Product used for unknown indication
     Dosage: UNK, VARIABLE DOSE
     Route: 065
     Dates: start: 20240426, end: 20240507
  4. METHYLPHENIDATE [Concomitant]
     Active Substance: METHYLPHENIDATE
     Indication: Product used for unknown indication
     Dosage: UNK, (08:00-2 TABLETS)
     Route: 065
     Dates: start: 20240507, end: 20240514
  5. QUETIAPINE [Concomitant]
     Active Substance: QUETIAPINE
     Indication: Product used for unknown indication
     Dosage: UNK, (17:00-1 TABLETS)
     Route: 065
     Dates: start: 20230810, end: 20240514

REACTIONS (1)
  - Hypersensitivity [Recovered/Resolved]
